FAERS Safety Report 13367102 (Version 1)
Quarter: 2017Q1

REPORT INFORMATION
  Report Type: Spontaneous
  Country: CA (occurrence: CA)
  Receive Date: 20170324
  Receipt Date: 20170324
  Transmission Date: 20170429
  Serious: Yes (Other)
  Sender: FDA-Public Use
  Company Number: CA-TEVA-751960ACC

PATIENT
  Sex: Male

DRUGS (1)
  1. ACT DICLO-MISO [Suspect]
     Active Substance: DICLOFENAC SODIUM\MISOPROSTOL
     Indication: ARTHRITIS
     Dosage: 2 DOSAGE FORMS DAILY;
     Route: 048

REACTIONS (2)
  - Presyncope [Recovered/Resolved]
  - Fatigue [Recovered/Resolved]
